FAERS Safety Report 4650583-1 (Version None)
Quarter: 2005Q2

REPORT INFORMATION
  Report Type: 
  Country: None (occurrence: None)
  Receive Date: 20050429
  Receipt Date: 20050429
  Transmission Date: 20051028
  Serious: No
  Sender: FDA-Public Use
  Company Number: None

PATIENT
  Sex: Female
  Weight: 84.8 kg

DRUGS (7)
  1. CISPLATIN [Suspect]
     Dosage: DAYS 1, 22, AND 43
     Dates: start: 20041117
  2. RADIATION THERAPY [Suspect]
     Dosage: 70 GY/35 FRACTIONS FOR 7 WEEKS
  3. ATIVAN [Concomitant]
  4. COMPAZINE [Concomitant]
  5. NEXIUM [Concomitant]
  6. SYNTHROID [Concomitant]
  7. ZOFRAN [Concomitant]

REACTIONS (6)
  - BLOOD ELECTROLYTES ABNORMAL [None]
  - DEHYDRATION [None]
  - DIARRHOEA [None]
  - NAUSEA [None]
  - RESPIRATORY ALKALOSIS [None]
  - VOMITING [None]
